FAERS Safety Report 24427244 (Version 1)
Quarter: 2024Q4

REPORT INFORMATION
  Report Type: Spontaneous
  Country: US (occurrence: US)
  Receive Date: 20241011
  Receipt Date: 20241011
  Transmission Date: 20250114
  Serious: No
  Sender: SANOFI AVENTIS
  Company Number: US-SA-2024SA292961

PATIENT
  Age: 41 Year

DRUGS (1)
  1. ELITEK [Suspect]
     Active Substance: RASBURICASE
     Indication: B-cell lymphoma
     Dosage: 6 MG, QD
     Route: 042

REACTIONS (2)
  - Off label use [Unknown]
  - Product prescribing error [Unknown]
